FAERS Safety Report 17307197 (Version 1)
Quarter: 2020Q1

REPORT INFORMATION
  Report Type: Spontaneous
  Country: NL (occurrence: NL)
  Receive Date: 20200123
  Receipt Date: 20200123
  Transmission Date: 20200409
  Serious: Yes (Hospitalization)
  Sender: FDA-Public Use
  Company Number: NL-TEVA-2020-NL-1171710

PATIENT
  Sex: Female
  Weight: 59 kg

DRUGS (10)
  1. EZETIMIB [Concomitant]
     Active Substance: EZETIMIBE
  2. FLUIMUCIL (ACETYLCYSTEINE) [Concomitant]
  3. SPIRIVA [Concomitant]
     Active Substance: TIOTROPIUM BROMIDE MONOHYDRATE
  4. MAAGZUURTABLET PANTOPRAZOL SAM (PANTOPRAZOL) [Concomitant]
  5. CLOPIDOGREL [Concomitant]
     Active Substance: CLOPIDOGREL BISULFATE
  6. PREDNISOLONE. [Suspect]
     Active Substance: PREDNISOLONE
     Indication: PNEUMONIA
     Dosage: 30 MILLIGRAM DAILY; CAPSULE, 30 MG (MILLIGRAM), ONCE A DAY, 1
     Dates: start: 201902, end: 20190220
  7. FOSTER (BECLOMETASON/FORMOTEROL) [Concomitant]
  8. IPRAMOL STERI-NEB (SALBUTAMOL/IPRATROPIUM) [Concomitant]
  9. LERCANIDIPINE [Concomitant]
     Active Substance: LERCANIDIPINE
  10. SPIRONOLACTON [Concomitant]
     Active Substance: SPIRONOLACTONE

REACTIONS (2)
  - Confusional state [Recovered/Resolved]
  - Hypomania [Recovered/Resolved]
